FAERS Safety Report 22192164 (Version 1)
Quarter: 2023Q2

REPORT INFORMATION
  Report Type: Spontaneous
  Country: US (occurrence: US)
  Receive Date: 20230410
  Receipt Date: 20230410
  Transmission Date: 20230721
  Serious: Yes (Other)
  Sender: FDA-Public Use
  Company Number: US-AMNEAL PHARMACEUTICALS-2023-AMRX-01155

PATIENT

DRUGS (2)
  1. ISOTRETINOIN [Suspect]
     Active Substance: ISOTRETINOIN
     Indication: Product used for unknown indication
     Dosage: 20 MILLIGRAM, BID
     Route: 065
  2. RABIES VACCINE [Concomitant]
     Active Substance: RABIES VACCINE
     Indication: Rabies immunisation
     Dosage: 14 DAY PERIOD
     Route: 065

REACTIONS (1)
  - Rabies [Unknown]
